FAERS Safety Report 10597523 (Version 1)
Quarter: 2014Q4

REPORT INFORMATION
  Report Type: Spontaneous
  Country: US (occurrence: None)
  Receive Date: 20141120
  Receipt Date: 20141120
  Transmission Date: 20150529
  Serious: No
  Sender: FDA-Public Use
  Company Number: None

PATIENT
  Age: 73 Year
  Sex: Male
  Weight: 114 kg

DRUGS (1)
  1. SUCCINYLCHOLINE [Suspect]
     Active Substance: SUCCINYLCHOLINE
     Dosage: 100MG X2 DOSES INTRAVENOUS
     Route: 042

REACTIONS (2)
  - Rhabdomyolysis [None]
  - Unevaluable event [None]

NARRATIVE: CASE EVENT DATE: 20141113
